FAERS Safety Report 23528475 (Version 2)
Quarter: 2024Q1

REPORT INFORMATION
  Report Type: Report from Study
  Country: US (occurrence: US)
  Receive Date: 20240215
  Receipt Date: 20240227
  Transmission Date: 20240410
  Serious: No
  Sender: FDA-Public Use
  Company Number: US-ALXN-A202109188

PATIENT
  Sex: Female

DRUGS (1)
  1. SOLIRIS [Suspect]
     Active Substance: ECULIZUMAB
     Indication: Myasthenia gravis
     Route: 065

REACTIONS (5)
  - Dysphagia [Unknown]
  - Mastication disorder [Unknown]
  - Dysarthria [Unknown]
  - Dysphonia [Unknown]
  - Visual impairment [Unknown]
